FAERS Safety Report 5953902-9 (Version None)
Quarter: 2008Q4

REPORT INFORMATION
  Report Type: 
  Country: None (occurrence: None)
  Receive Date: 20081114
  Receipt Date: 20081110
  Transmission Date: 20090506
  Serious: Yes (Death, Hospitalization, Other)
  Sender: FDA-Public Use
  Company Number: ES-ROXANE LABORATORIES, INC.-2008-RO-00207RO

PATIENT
  Age: 65 Year
  Sex: Male

DRUGS (11)
  1. CALCITRIOL [Suspect]
     Indication: HYPOCALCAEMIA
     Dosage: 1MCG
     Route: 048
  2. PREDNISONE TAB [Suspect]
     Indication: LIVER TRANSPLANT
  3. MYCOPHENOLATE MOFETIL [Suspect]
     Indication: LIVER TRANSPLANT
  4. CALCIUM CARBONATE [Suspect]
     Indication: HYPOCALCAEMIA
  5. CYCLOSPORINE [Suspect]
     Indication: LIVER TRANSPLANT
  6. METHYLPREDNISOLONE 16MG TAB [Suspect]
     Indication: TRANSPLANT REJECTION
  7. ACENOCUMAROL [Suspect]
     Indication: ATRIAL FIBRILLATION
  8. OPIATES [Concomitant]
     Indication: PAIN
  9. ANTIBIOTICS [Concomitant]
     Indication: CALCIPHYLAXIS
     Route: 061
  10. ANTIBIOTICS [Concomitant]
  11. FLUCONAZOLE [Concomitant]
     Indication: CALCIPHYLAXIS
     Route: 042

REACTIONS (10)
  - ATRIAL FIBRILLATION [None]
  - CALCIPHYLAXIS [None]
  - CONGESTIVE CARDIOMYOPATHY [None]
  - CRYPTOCOCCOSIS [None]
  - HAEMODYNAMIC INSTABILITY [None]
  - HYPOCALCAEMIA [None]
  - PYREXIA [None]
  - RENAL FAILURE ACUTE [None]
  - SEPTIC SHOCK [None]
  - TYPE 2 DIABETES MELLITUS [None]
